FAERS Safety Report 19908775 (Version 2)
Quarter: 2021Q4

REPORT INFORMATION
  Report Type: Report from Study
  Country: US (occurrence: US)
  Receive Date: 20211001
  Receipt Date: 20211015
  Transmission Date: 20220303
  Serious: Yes (Other)
  Sender: FDA-Public Use
  Company Number: US-SEATTLE GENETICS-2021SGN01176

PATIENT
  Age: 69 Year
  Sex: Male
  Weight: 64 kg

DRUGS (25)
  1. TISOTUMAB VEDOTIN [Suspect]
     Active Substance: TISOTUMAB VEDOTIN
     Indication: Non-small cell lung cancer
     Dosage: 0.9 MG/KG ON DAYS 1, 8, AND 15 OF A 28-DAY CYCLE
     Route: 042
     Dates: start: 20201113, end: 20210121
  2. TESSALON [Concomitant]
     Active Substance: BENZONATATE
     Indication: Cough
     Dosage: 200 MG, AS NECESSARY
     Route: 048
     Dates: start: 20201112, end: 20210203
  3. BRIMONIDINE [Concomitant]
     Active Substance: BRIMONIDINE TARTRATE
     Dosage: 3 GTT, AS NECESSARY
     Route: 047
     Dates: start: 20201113
  4. REFRESH PLUS [Concomitant]
     Active Substance: CARBOXYMETHYLCELLULOSE SODIUM
     Indication: Prophylaxis
     Dosage: 1 GTT, TID
     Route: 047
     Dates: start: 20201113
  5. COENZYME Q10 [Concomitant]
     Active Substance: DIETARY SUPPLEMENT\UBIDECARENONE
     Indication: Nutritional supplementation
     Dosage: 200 MG, QD
     Route: 048
     Dates: start: 20190910
  6. DEXAMETHASONE [Concomitant]
     Active Substance: DEXAMETHASONE
     Indication: Prophylaxis
     Dosage: 1 GTT, TID
     Route: 047
     Dates: start: 20201112
  7. LUNESTA [Concomitant]
     Active Substance: ESZOPICLONE
     Indication: Insomnia
     Dosage: 1 MG, QD
     Route: 048
     Dates: start: 20201210, end: 20210203
  8. PROSCAR [Concomitant]
     Active Substance: FINASTERIDE
     Indication: Androgenetic alopecia
     Dosage: 1 DF, QD
     Route: 048
     Dates: start: 20190910
  9. NEURONTIN [Concomitant]
     Active Substance: GABAPENTIN
     Indication: Neuropathy peripheral
     Dosage: 300 MG, BID
     Route: 048
     Dates: start: 20201229, end: 20210107
  10. NEURONTIN [Concomitant]
     Active Substance: GABAPENTIN
     Dosage: 600 MG, QD
     Route: 048
     Dates: start: 20210107, end: 20210203
  11. NEURONTIN [Concomitant]
     Active Substance: GABAPENTIN
     Dosage: 900 MG, QD
     Route: 048
     Dates: start: 20210107
  12. NEURONTIN [Concomitant]
     Active Substance: GABAPENTIN
     Dosage: 300 MG, BID
     Route: 048
     Dates: start: 20210107
  13. HYCODAN [Concomitant]
     Active Substance: HOMATROPINE METHYLBROMIDE\HYDROCODONE BITARTRATE
     Indication: Cough
     Dosage: 5 ML, AS NECESSARY
     Route: 048
     Dates: start: 20200923, end: 20210203
  14. ADVIL/MOTRIN [Concomitant]
     Indication: Cancer pain
     Dosage: 200 MG, QD
     Route: 048
     Dates: start: 20201015
  15. MELATONIN [Concomitant]
     Active Substance: MELATONIN
     Indication: Insomnia
     Dosage: 10 MG, QD
     Route: 048
     Dates: start: 20201229
  16. MELATONIN [Concomitant]
     Active Substance: MELATONIN
     Dosage: 20 MG, QD
     Route: 048
     Dates: start: 20201229
  17. CENTRUM SILVER WITH LYCOPENE [Concomitant]
     Indication: Nutritional supplementation
     Dosage: 1 DF, QD
     Route: 048
     Dates: start: 20190910
  18. ZYPREXA [Concomitant]
     Active Substance: OLANZAPINE
     Indication: Insomnia
     Dosage: UNK, QD
     Route: 048
     Dates: start: 20210203
  19. ZOFRAN [Concomitant]
     Active Substance: ONDANSETRON HYDROCHLORIDE
     Indication: Nausea
     Dosage: 8 MG, AS NECESSARY
     Route: 048
     Dates: start: 20200421
  20. ZOFRAN [Concomitant]
     Active Substance: ONDANSETRON HYDROCHLORIDE
     Indication: Vomiting
  21. MIRALAX [Concomitant]
     Active Substance: POLYETHYLENE GLYCOL 3350
     Indication: Constipation
     Dosage: 17 G, QD
     Route: 048
     Dates: start: 20201015
  22. PROCHLORPERAZINE EDISYLATE [Concomitant]
     Active Substance: PROCHLORPERAZINE EDISYLATE
     Indication: Nausea
     Dosage: 10 MG, AS NECESSARY
     Route: 048
     Dates: start: 20200421, end: 20210203
  23. PSYLLIUM HUSK [Concomitant]
     Active Substance: PSYLLIUM HUSK
     Indication: Constipation
     Dosage: UNK, QD
     Route: 048
     Dates: start: 20191015
  24. CRESTOR [Concomitant]
     Active Substance: ROSUVASTATIN CALCIUM
     Indication: Hyperlipidaemia
     Dosage: 5 MG
     Route: 048
     Dates: start: 20191114
  25. SENOKOT [Concomitant]
     Active Substance: SENNOSIDES
     Indication: Constipation
     Dosage: 2 DF, BID
     Route: 048
     Dates: start: 20210203

REACTIONS (1)
  - Guillain-Barre syndrome [Not Recovered/Not Resolved]

NARRATIVE: CASE EVENT DATE: 20210204
